FAERS Safety Report 6340113-0 (Version None)
Quarter: 2009Q3

REPORT INFORMATION
  Report Type: 
  Country: None (occurrence: None)
  Receive Date: 20090902
  Receipt Date: 20090818
  Transmission Date: 20100115
  Serious: Yes (Hospitalization)
  Sender: FDA-Public Use
  Company Number: SPV1-2009-01703

PATIENT
  Age: 7 Year
  Sex: Male

DRUGS (2)
  1. ELAPRASE [Suspect]
     Indication: MUCOPOLYSACCHARIDOSIS II
  2. AMPICILLIN [Concomitant]

REACTIONS (3)
  - AORTIC VALVE INCOMPETENCE [None]
  - CARDIAC VALVE VEGETATION [None]
  - PYREXIA [None]
